FAERS Safety Report 9000104 (Version 2)
Quarter: 2013Q1

REPORT INFORMATION
  Report Type: Spontaneous
  Country: US (occurrence: US)
  Receive Date: 20130102
  Receipt Date: 20130110
  Transmission Date: 20140127
  Serious: Yes (Hospitalization, Other)
  Sender: FDA-Public Use
  Company Number: US-MYLANLABS-2012S1026019

PATIENT
  Age: 67 Year
  Sex: Male
  Weight: 97.52 kg

DRUGS (14)
  1. EXTENDED PHENYTOIN SODIUM CAPSULES, USP [Suspect]
     Indication: CONVULSION PROPHYLAXIS
     Route: 048
     Dates: start: 20110908, end: 20121214
  2. POTASSIUM CHLORIDE [Concomitant]
     Route: 048
     Dates: start: 201211
  3. CLINDAMYCIN [Concomitant]
     Indication: TOOTH ABSCESS
     Route: 048
     Dates: start: 20121203
  4. CHEMOTHERAPEUTICS [Concomitant]
     Indication: GLIOBLASTOMA
     Dosage: CHEMOTHERAPY AGENT CHANGED SEVERAL MONTHS AGO.
  5. ASA [Concomitant]
     Route: 048
  6. MIRALAX /00754501/ [Concomitant]
     Indication: CONSTIPATION
     Dosage: 1 TBS
     Route: 048
  7. NYSTATIN [Concomitant]
     Indication: ANTIFUNGAL PROPHYLAXIS
     Dosage: 1 TSP
     Route: 048
  8. OMEPRAZOLE [Concomitant]
     Indication: GASTROOESOPHAGEAL REFLUX DISEASE
     Route: 048
  9. SUCRALFATE [Concomitant]
     Indication: GASTRIC ULCER
     Route: 048
  10. DEXAMETHASONE [Concomitant]
     Route: 048
  11. SINGULAR [Concomitant]
     Indication: MULTIPLE ALLERGIES
     Route: 048
  12. FUROSEMIDE [Concomitant]
     Indication: BLOOD PRESSURE INCREASED
     Route: 048
  13. METOPROLOL SUCCINATE [Concomitant]
     Indication: BLOOD PRESSURE INCREASED
     Route: 048
  14. HYDROCODONE + ACETAMINOPHEN [Concomitant]
     Indication: PAIN
     Dosage: PAIN SECONDARY TO ROOT CANAL
     Route: 048
     Dates: start: 20121203

REACTIONS (3)
  - Drug ineffective [Recovered/Resolved]
  - Convulsion [Recovered/Resolved]
  - Anticonvulsant drug level below therapeutic [Recovered/Resolved]
